FAERS Safety Report 20904110 (Version 1)
Quarter: 2022Q2

REPORT INFORMATION
  Report Type: Report from Study
  Country: US (occurrence: US)
  Receive Date: 20220602
  Receipt Date: 20220602
  Transmission Date: 20220721
  Serious: Yes (Hospitalization)
  Sender: FDA-Public Use
  Company Number: US-ABBVIE-22K-163-4417228-00

PATIENT
  Sex: Female

DRUGS (1)
  1. VENCLEXTA [Suspect]
     Active Substance: VENETOCLAX
     Indication: Monoclonal gammopathy
     Dosage: TAKE 1 TAB BY MOUTH WITH WATER AND MEAL DAILY FOR 7 DAY FOLLOWED BY 7 DAY BREAK AND REPEAT
     Route: 048

REACTIONS (1)
  - Diverticulum [Unknown]
